FAERS Safety Report 20099235 (Version 12)
Quarter: 2023Q1

REPORT INFORMATION
  Report Type: Spontaneous
  Country: CA (occurrence: CA)
  Receive Date: 20211122
  Receipt Date: 20230117
  Transmission Date: 20230418
  Serious: Yes (Other)
  Sender: FDA-Public Use
  Company Number: CA-CELLTRION INC.-2021CA015727

PATIENT

DRUGS (9)
  1. INFLECTRA [Suspect]
     Active Substance: INFLIXIMAB-DYYB
     Indication: Psoriatic arthropathy
     Dosage: 500 MG, Q (EVERY) 0, 2, 6 WEEKS THEN EVERY 6 WEEKS
     Route: 042
     Dates: start: 20211111, end: 20211111
  2. INFLECTRA [Suspect]
     Active Substance: INFLIXIMAB-DYYB
     Indication: Psoriatic arthropathy
     Dosage: 500 MG, RE-INDUCTION AT WEEK 0, 2 AND 6 THEN Q 6 WEEKS
     Route: 042
     Dates: start: 20211207, end: 20220816
  3. INFLECTRA [Suspect]
     Active Substance: INFLIXIMAB-DYYB
     Dosage: 500 MG, RE-INDUCTION AT WEEK 0, 2 AND 6 THEN Q 6 WEEKS
     Route: 042
     Dates: start: 20220119
  4. INFLECTRA [Suspect]
     Active Substance: INFLIXIMAB-DYYB
     Dosage: 500 MG, RE-INDUCTION AT WEEK 0, 2 AND 6 THEN Q 6 WEEKS
     Route: 042
     Dates: start: 20220706
  5. INFLECTRA [Suspect]
     Active Substance: INFLIXIMAB-DYYB
     Dosage: 500 MG, RE-INDUCTION AT WEEK 0, 2 AND 6 THEN Q 6 WEEKS
     Route: 042
     Dates: start: 20220816
  6. INFLECTRA [Suspect]
     Active Substance: INFLIXIMAB-DYYB
     Dosage: 500 MG, SUPPOSED TO RECEIVE 750 MG EVERY 6 WKS RESCUE DOSE IN 4 WKS LAST DOSE AND AFTER EVERY 6 WKS
     Route: 042
     Dates: start: 20221006
  7. INFLECTRA [Suspect]
     Active Substance: INFLIXIMAB-DYYB
     Dosage: 750 MG, RESCUE DOSE IN 4 WEEKS FROM LAST DOSE AND AFTER THAT EVERY 6 WEEKS
     Route: 042
     Dates: start: 20221101
  8. ETANERCEPT [Concomitant]
     Active Substance: ETANERCEPT
     Dosage: UNK
  9. METHOTREXATE [Concomitant]
     Active Substance: METHOTREXATE
     Indication: Psoriatic arthropathy
     Dosage: 1 DF, DOSAGE INFO: UNKNOWN
     Route: 065

REACTIONS (9)
  - Rash [Recovering/Resolving]
  - Off label use [Unknown]
  - Off label use [Unknown]
  - Inappropriate schedule of product administration [Unknown]
  - Incorrect dose administered [Unknown]
  - Product dose omission issue [Unknown]
  - COVID-19 [Recovered/Resolved]
  - Influenza [Recovered/Resolved]
  - Condition aggravated [Recovered/Resolved]

NARRATIVE: CASE EVENT DATE: 20211111
